FAERS Safety Report 13878736 (Version 1)
Quarter: 2017Q3

REPORT INFORMATION
  Report Type: Spontaneous
  Country: US (occurrence: US)
  Receive Date: 20170817
  Receipt Date: 20170817
  Transmission Date: 20171127
  Serious: Yes (Life-Threatening, Other)
  Sender: FDA-Public Use
  Company Number: US-BAUSCH-BL-2017-024047

PATIENT
  Age: 52 Year
  Sex: Male

DRUGS (2)
  1. LIDOCAINE 1 % [Suspect]
     Active Substance: LIDOCAINE
     Indication: ANAESTHESIA
     Route: 008
  2. DEXAMETHASONE. [Suspect]
     Active Substance: DEXAMETHASONE
     Indication: NECK PAIN
     Route: 008

REACTIONS (7)
  - Nystagmus [Recovered/Resolved]
  - Vertigo [Recovered/Resolved]
  - Anxiety [Recovered/Resolved]
  - Dysphagia [Recovered/Resolved]
  - Accidental exposure to product [Recovered/Resolved]
  - Dizziness [Recovered/Resolved]
  - Blood pressure increased [Recovered/Resolved]
